FAERS Safety Report 12983135 (Version 1)
Quarter: 2016Q4

REPORT INFORMATION
  Report Type: Spontaneous
  Country: US (occurrence: US)
  Receive Date: 20161129
  Receipt Date: 20161129
  Transmission Date: 20170207
  Serious: No
  Sender: FDA-Public Use
  Company Number: None

PATIENT

DRUGS (1)
  1. MUCINEX ALLERGY [Suspect]
     Active Substance: FEXOFENADINE HYDROCHLORIDE
     Dosage: MUCINEX ALLERGY FEXOFENADINE HYDROCHLORIDE - TABLET - PO - TYPE - BOX SIZE - 10 TABLETS
     Route: 048

REACTIONS (1)
  - Product name confusion [None]
